FAERS Safety Report 16559439 (Version 3)
Quarter: 2019Q4

REPORT INFORMATION
  Report Type: Spontaneous
  Country: JP (occurrence: JP)
  Receive Date: 20190711
  Receipt Date: 20191014
  Transmission Date: 20200122
  Serious: Yes (Death)
  Sender: FDA-Public Use
  Company Number: JP-ACTELION-A-CH2019-185945

PATIENT
  Age: 75 Year
  Sex: Female
  Weight: 60.3 kg

DRUGS (16)
  1. ADEMPAS [Concomitant]
     Active Substance: RIOCIGUAT
  2. DIART [Concomitant]
     Active Substance: AZOSEMIDE
  3. XYZAL [Concomitant]
     Active Substance: LEVOCETIRIZINE DIHYDROCHLORIDE
  4. PROMAC [Concomitant]
     Active Substance: NITROFURANTOIN
  5. ADCIRCA [Concomitant]
     Active Substance: TADALAFIL
  6. PREDONINE [Concomitant]
     Active Substance: PREDNISOLONE
  7. UPTRAVI [Concomitant]
     Active Substance: SELEXIPAG
  8. DEPAS [Concomitant]
  9. KIPRES [Concomitant]
     Active Substance: MONTELUKAST SODIUM
  10. MEDICON [Concomitant]
     Active Substance: DEXTROMETHORPHAN HYDROBROMIDE
  11. LUNESTA [Concomitant]
     Active Substance: ESZOPICLONE
  12. OPSUMIT [Suspect]
     Active Substance: MACITENTAN
     Indication: PULMONARY ARTERIAL HYPERTENSION
     Dosage: 10 MG, QD
     Route: 048
     Dates: start: 20180704, end: 20190420
  13. AMLODIPINE [Concomitant]
     Active Substance: AMLODIPINE BESYLATE
  14. NEXIUM [Concomitant]
     Active Substance: ESOMEPRAZOLE MAGNESIUM
  15. ACTONEL [Concomitant]
     Active Substance: RISEDRONATE SODIUM
  16. OXYGEN. [Concomitant]
     Active Substance: OXYGEN

REACTIONS (2)
  - Anaemia [Unknown]
  - Interstitial lung disease [Fatal]

NARRATIVE: CASE EVENT DATE: 20180718
